FAERS Safety Report 8845239 (Version 1)
Quarter: 2012Q4

REPORT INFORMATION
  Report Type: Report from Study
  Country: JP (occurrence: JP)
  Receive Date: 20121017
  Receipt Date: 20121017
  Transmission Date: 20130627
  Serious: Yes (Hospitalization, Other)
  Sender: FDA-Public Use
  Company Number: JP-PFIZER INC-2012118034

PATIENT
  Age: 59 Year
  Sex: Female
  Weight: 46 kg

DRUGS (8)
  1. IRINOTECAN HCL [Suspect]
     Indication: COLORECTAL CANCER
     Dosage: 180 mg (133.3 mg/m2), 1x/day
     Route: 041
     Dates: start: 20101206, end: 20101206
  2. IRINOTECAN HCL [Suspect]
     Dosage: 180 mg (133.3 mg/m2), 1x/day
     Route: 041
     Dates: start: 20101220, end: 20101220
  3. IRINOTECAN HCL [Suspect]
     Dosage: 180 mg (133.3 mg/m2), 1x/day
     Route: 041
     Dates: start: 20110113, end: 20110113
  4. IRINOTECAN HCL [Suspect]
     Dosage: 180 mg (133.3 mg/m2), 1x/day
     Route: 041
     Dates: start: 20110131, end: 20110131
  5. CALCIUM LEVOFOLINATE [Concomitant]
     Indication: COLORECTAL CANCER
     Dosage: 250 mg (185.2 mg/m2)
     Dates: start: 20101206, end: 20110131
  6. FLUOROURACIL [Concomitant]
     Indication: COLORECTAL CANCER
     Dosage: 500 mg (370.4 mg/m2)
     Route: 040
     Dates: start: 20101206, end: 20110131
  7. FLUOROURACIL [Concomitant]
     Dosage: 2750 mg (2037 mg/m2) day 1-2 as continuous infusion
     Route: 042
     Dates: start: 20101206, end: 20110131
  8. GULUCOLIN S [Concomitant]
     Dosage: UNK
     Dates: start: 20110221, end: 20110221

REACTIONS (7)
  - Aspartate aminotransferase increased [Not Recovered/Not Resolved]
  - Alanine aminotransferase increased [Not Recovered/Not Resolved]
  - Ileus paralytic [Unknown]
  - Hepatic function abnormal [Unknown]
  - Abdominal pain [Unknown]
  - White blood cell count decreased [Unknown]
  - Diarrhoea [Unknown]
